FAERS Safety Report 9288935 (Version 4)
Quarter: 2013Q2

REPORT INFORMATION
  Report Type: Report from Study
  Country: TW (occurrence: TW)
  Receive Date: 20130514
  Receipt Date: 20130621
  Transmission Date: 20140414
  Serious: Yes (Hospitalization)
  Sender: FDA-Public Use
  Company Number: TW-GLAXOSMITHKLINE-B0874927B

PATIENT
  Age: 72 Year
  Sex: Male
  Weight: 51 kg

DRUGS (9)
  1. FLUTICASONE FUROATE [Suspect]
     Indication: CHRONIC OBSTRUCTIVE PULMONARY DISEASE
     Dates: start: 20121024
  2. XANTHIUM [Concomitant]
     Indication: CHRONIC OBSTRUCTIVE PULMONARY DISEASE
     Route: 048
     Dates: start: 20120810
  3. FENSPIRIDE [Concomitant]
     Indication: CHRONIC OBSTRUCTIVE PULMONARY DISEASE
     Dosage: 40MG THREE TIMES PER DAY
     Route: 048
     Dates: start: 20120810
  4. ISOSORBIDE MONONITRATE [Concomitant]
     Indication: CORONARY ARTERY DISEASE
     Dosage: 40MG PER DAY
     Route: 048
     Dates: start: 20120914
  5. PANTOPRAZOLE [Concomitant]
     Indication: GASTRITIS
     Dosage: 40MG PER DAY
     Route: 048
     Dates: start: 20120924
  6. ZALEPLON [Concomitant]
     Indication: INSOMNIA
     Route: 048
     Dates: start: 20120924
  7. GLIBENCLAMIDE [Concomitant]
     Indication: DIABETES MELLITUS
     Route: 048
     Dates: start: 20120914
  8. ACETAMINOPHEN [Concomitant]
     Indication: BACK PAIN
     Dosage: 500MG THREE TIMES PER DAY
     Route: 048
     Dates: start: 20121008
  9. SALICYLIC ACID [Concomitant]
     Indication: TINEA INFECTION
     Dosage: 2PCT TWICE PER DAY
     Route: 061
     Dates: start: 20121009

REACTIONS (1)
  - Chronic obstructive pulmonary disease [Recovered/Resolved]
